FAERS Safety Report 5401120-5 (Version None)
Quarter: 2007Q3

REPORT INFORMATION
  Report Type: 
  Country: None (occurrence: None)
  Receive Date: 20070731
  Receipt Date: 20070719
  Transmission Date: 20080115
  Serious: Yes (Other)
  Sender: FDA-Public Use
  Company Number: GB-NOVOPROD-265124

PATIENT
  Sex: Female
  Weight: 61.3 kg

DRUGS (6)
  1. LEVEMIR [Suspect]
     Indication: TYPE 1 DIABETES MELLITUS
     Dosage: 22 IU, QD
     Route: 058
     Dates: start: 20070505, end: 20070707
  2. NORDITROPIN [Concomitant]
     Dosage: .3 UNK, QD
     Route: 058
  3. LEVOTHYROXINE SODIUM [Concomitant]
     Dosage: 50 UG, QD
     Route: 048
  4. ASPIRINE                           /00002701/ [Concomitant]
     Dosage: 75 MG, QD
     Route: 048
  5. SIMVASTATIN [Concomitant]
     Dosage: 10 MG, QD
     Route: 048
  6. VITAMIN B12                        /00056201/ [Concomitant]
     Route: 030

REACTIONS (2)
  - DIZZINESS [None]
  - FEELING HOT [None]
